FAERS Safety Report 20222466 (Version 2)
Quarter: 2022Q1

REPORT INFORMATION
  Report Type: Report from Study
  Country: US (occurrence: None)
  Receive Date: 20211223
  Receipt Date: 20220221
  Transmission Date: 20220424
  Serious: Yes (Hospitalization, Other)
  Sender: FDA-Public Use
  Company Number: US-ROCHE-2984764

PATIENT
  Age: 59 Year
  Sex: Male
  Weight: 88.2 kg

DRUGS (2)
  1. ITACITINIB [Suspect]
     Active Substance: ITACITINIB
     Indication: Bronchiolitis obliterans syndrome
     Dosage: LAST DOSE PRIOR TO AE: 18/NOV/2021
     Route: 048
     Dates: start: 20200622, end: 20211118
  2. VALGANCICLOVIR [Suspect]
     Active Substance: VALGANCICLOVIR
     Indication: Bronchiolitis obliterans syndrome
     Route: 065
     Dates: start: 20210903, end: 20211118

REACTIONS (2)
  - Refractory cytopenia with unilineage dysplasia [Recovered/Resolved]
  - Pulmonary function test decreased [Recovered/Resolved]

NARRATIVE: CASE EVENT DATE: 20211201
